FAERS Safety Report 23909881 (Version 6)
Quarter: 2025Q4

REPORT INFORMATION
  Report Type: Report from Study
  Country: US (occurrence: US)
  Receive Date: 20240528
  Receipt Date: 20251001
  Transmission Date: 20260118
  Serious: Yes (Other)
  Sender: TAKEDA
  Company Number: US-TAKEDA-US201904278

PATIENT
  Sex: Female

DRUGS (5)
  1. HUMAN IMMUNOGLOBULIN G [Suspect]
     Active Substance: HUMAN IMMUNOGLOBULIN G
     Indication: Secondary immunodeficiency
     Dosage: UNK
  2. HUMAN IMMUNOGLOBULIN G [Suspect]
     Active Substance: HUMAN IMMUNOGLOBULIN G
     Indication: Primary immunodeficiency syndrome
     Dosage: 20 GRAM
  3. HUMAN IMMUNOGLOBULIN G [Suspect]
     Active Substance: HUMAN IMMUNOGLOBULIN G
     Dosage: 30 GRAM
  4. HUMAN IMMUNOGLOBULIN G [Suspect]
     Active Substance: HUMAN IMMUNOGLOBULIN G
     Dosage: UNK
  5. HUMAN IMMUNOGLOBULIN G [Suspect]
     Active Substance: HUMAN IMMUNOGLOBULIN G
     Dosage: 30 GRAM, Q2WEEKS

REACTIONS (18)
  - Neuropathy peripheral [Unknown]
  - Atypical pneumonia [Not Recovered/Not Resolved]
  - Glycosylated haemoglobin increased [Unknown]
  - COVID-19 [Unknown]
  - Vascular injury [Unknown]
  - Bronchitis [Unknown]
  - Pyrexia [Unknown]
  - Immunoglobulins decreased [Unknown]
  - Fibromyalgia [Unknown]
  - Inappropriate schedule of product administration [Unknown]
  - Fall [Unknown]
  - Ligament sprain [Unknown]
  - Joint injury [Unknown]
  - Road traffic accident [Unknown]
  - Vertigo [Unknown]
  - Arthralgia [Unknown]
  - Migraine [Unknown]
  - Fatigue [Unknown]
